FAERS Safety Report 6906168-7 (Version None)
Quarter: 2010Q3

REPORT INFORMATION
  Report Type: 
  Country: None (occurrence: None)
  Receive Date: 20100803
  Receipt Date: 20100803
  Transmission Date: 20110219
  Serious: Yes (Other)
  Sender: FDA-Public Use
  Company Number: None

PATIENT
  Sex: Female
  Weight: 119.296 kg

DRUGS (1)
  1. LEVAQUIN [Suspect]
     Indication: PNEUMONIA BACTERIAL
     Dosage: PO
     Route: 048
     Dates: start: 20100728, end: 20100730

REACTIONS (5)
  - ABNORMAL BEHAVIOUR [None]
  - COLOUR BLINDNESS ACQUIRED [None]
  - CONFUSIONAL STATE [None]
  - HALLUCINATION, VISUAL [None]
  - PSYCHOTIC DISORDER [None]
